FAERS Safety Report 9791861 (Version 1)
Quarter: 2014Q1

REPORT INFORMATION
  Report Type: Spontaneous
  Country: US (occurrence: US)
  Receive Date: 20140102
  Receipt Date: 20140102
  Transmission Date: 20141002
  Serious: No
  Sender: FDA-Public Use
  Company Number: US-PFIZER INC-2013374162

PATIENT
  Age: 79 Year
  Sex: Female

DRUGS (13)
  1. LIDOCAINE HCL [Suspect]
     Dosage: UNK
  2. PRISTIQ [Suspect]
     Dosage: UNK
  3. XOPENEX [Suspect]
     Dosage: UNK
  4. MUPIROCIN [Suspect]
     Dosage: UNK
  5. ESTRACE [Suspect]
     Dosage: UNK
  6. LEVAQUIN [Suspect]
     Dosage: UNK
  7. VIGAMOX [Suspect]
     Dosage: UNK
  8. KEFLEX [Suspect]
     Dosage: UNK
  9. DARVOCET [Suspect]
     Dosage: UNK
  10. ACIPHEX [Suspect]
     Dosage: UNK
  11. ISOVUE [Suspect]
     Dosage: UNK
  12. VERSED [Suspect]
     Dosage: UNK
  13. DILAUDID [Suspect]
     Dosage: UNK

REACTIONS (1)
  - Drug hypersensitivity [Unknown]
